FAERS Safety Report 13782006 (Version 17)
Quarter: 2018Q4

REPORT INFORMATION
  Report Type: Spontaneous
  Country: US (occurrence: US)
  Receive Date: 20170724
  Receipt Date: 20181011
  Transmission Date: 20190204
  Serious: Yes (Death, Hospitalization)
  Sender: FDA-Public Use
  Company Number: US-ACTELION-A-NJ2017-157065

PATIENT
  Age: 58 Year
  Sex: Male
  Weight: 81.63 kg

DRUGS (9)
  1. ADCIRCA [Concomitant]
     Active Substance: TADALAFIL
  2. VELETRI [Suspect]
     Active Substance: EPOPROSTENOL
     Indication: PULMONARY HYPERTENSION
     Dosage: 42 NG/KG, PER MIN
     Route: 042
  3. OPSUMIT [Suspect]
     Active Substance: MACITENTAN
     Dosage: 10 MG, QD
     Route: 048
  4. TRACLEER [Concomitant]
     Active Substance: BOSENTAN
     Indication: PULMONARY ARTERIAL HYPERTENSION
  5. VELETRI [Suspect]
     Active Substance: EPOPROSTENOL
     Dosage: 30 NG/KG, PER MIN
     Route: 042
  6. VELETRI [Suspect]
     Active Substance: EPOPROSTENOL
     Dosage: 40 NG/KG, PER MIN
     Route: 042
  7. VELETRI [Suspect]
     Active Substance: EPOPROSTENOL
     Dosage: 36.3 NG/KG, PER MIN
     Route: 042
  8. OPSUMIT [Suspect]
     Active Substance: MACITENTAN
     Indication: PULMONARY HYPERTENSION
     Dosage: 10 MG, QD
     Route: 048
  9. ORENITRAM [Concomitant]
     Active Substance: TREPROSTINIL

REACTIONS (22)
  - Dyspnoea [Unknown]
  - Swelling [Unknown]
  - Hospitalisation [Unknown]
  - Death [Fatal]
  - Diarrhoea [Unknown]
  - Asthenia [Unknown]
  - Pain [Unknown]
  - Ventricular tachycardia [Unknown]
  - Cellulitis [Unknown]
  - Device malfunction [Unknown]
  - Device issue [Unknown]
  - Product dose omission [Unknown]
  - Complication associated with device [Unknown]
  - Abdominal discomfort [Unknown]
  - Thrombosis [Unknown]
  - Device leakage [Unknown]
  - Oxygen consumption increased [Unknown]
  - Chest discomfort [Unknown]
  - Fluid overload [Unknown]
  - Fluid retention [Unknown]
  - Small intestinal obstruction [Unknown]
  - Device occlusion [Unknown]

NARRATIVE: CASE EVENT DATE: 20180612
